FAERS Safety Report 9267772 (Version 3)
Quarter: 2014Q1

REPORT INFORMATION
  Report Type: Report from Study
  Country: US (occurrence: US)
  Receive Date: 20130502
  Receipt Date: 20140124
  Transmission Date: 20141002
  Serious: Yes (Hospitalization)
  Sender: FDA-Public Use
  Company Number: US-ALEXION-A201200957

PATIENT
  Age: 27 Year
  Sex: Female
  Weight: 53 kg

DRUGS (7)
  1. SOLIRIS [Suspect]
     Indication: THROMBOTIC THROMBOCYTOPENIC PURPURA
     Dosage: 900 MG, QW
     Route: 042
  2. SOLIRIS [Suspect]
     Indication: OFF LABEL USE
     Dosage: 1200 MG, Q2W
     Route: 042
     Dates: start: 20120124, end: 20120417
  3. SOLIRIS [Suspect]
     Indication: THROMBOTIC THROMBOCYTOPENIC PURPURA
  4. LISINOPRIL [Concomitant]
     Indication: HYPERTENSION
     Dosage: 20 MG, QD
     Route: 048
  5. POTASSIUM [Concomitant]
     Indication: HYPOKALAEMIA
     Dosage: 20 MEQ, QD
     Route: 048
  6. LORTAB [Concomitant]
     Indication: ABDOMINAL PAIN
     Dosage: 5 MG, BID PRN
     Route: 048
  7. LASIX [Concomitant]
     Indication: GLOMERULONEPHRITIS
     Dosage: 80 MG, BID
     Route: 048

REACTIONS (5)
  - Chest pain [Unknown]
  - Chest discomfort [Unknown]
  - Drug ineffective [Unknown]
  - Malaise [Unknown]
  - Off label use [Recovered/Resolved]
